FAERS Safety Report 26198738 (Version 1)
Quarter: 2025Q4

REPORT INFORMATION
  Report Type: Spontaneous
  Country: US (occurrence: US)
  Receive Date: 20251225
  Receipt Date: 20251225
  Transmission Date: 20260118
  Serious: No
  Sender: Haleon PLC
  Company Number: US-HALEON-2280844

PATIENT
  Age: 59 Year
  Sex: Female

DRUGS (1)
  1. IBUPROFEN [Suspect]
     Active Substance: IBUPROFEN
     Indication: Pericarditis

REACTIONS (1)
  - Drug ineffective [Unknown]
